FAERS Safety Report 14980136 (Version 6)
Quarter: 2019Q2

REPORT INFORMATION
  Report Type: Report from Study
  Country: DE (occurrence: DE)
  Receive Date: 20180606
  Receipt Date: 20190606
  Transmission Date: 20190711
  Serious: Yes (Death, Life-Threatening, Hospitalization)
  Sender: FDA-Public Use
  Company Number: DE-PFIZER INC-2018225850

PATIENT
  Age: 50 Year
  Sex: Female
  Weight: 66 kg

DRUGS (14)
  1. DOCETAXEL. [Suspect]
     Active Substance: DOCETAXEL
     Indication: HER-2 POSITIVE BREAST CANCER
     Dosage: 60-75 MG/M2
     Route: 042
     Dates: start: 20161108
  2. HERCEPTIN [Suspect]
     Active Substance: TRASTUZUMAB
     Indication: HER-2 POSITIVE BREAST CANCER
     Dosage: 6 MG/KG, EVERY 21 DAYS
     Route: 042
     Dates: start: 20140108
  3. ZOMETA [Suspect]
     Active Substance: ZOLEDRONIC ACID
     Dosage: 4 MG, UNK
     Dates: start: 20170302, end: 20170827
  4. PERTUZUMAB. [Suspect]
     Active Substance: PERTUZUMAB
     Indication: HER-2 POSITIVE BREAST CANCER
     Dosage: 420 MG, EVERY 21 DAYS
     Route: 042
     Dates: start: 20161108
  5. HERCEPTIN [Suspect]
     Active Substance: TRASTUZUMAB
     Dosage: 6 MG/KG EVERY 21 DAYS
     Route: 042
     Dates: start: 20161108
  6. PERTUZUMAB. [Suspect]
     Active Substance: PERTUZUMAB
     Indication: BREAST CANCER
  7. LETROZOL [Suspect]
     Active Substance: LETROZOLE
     Indication: HER-2 POSITIVE BREAST CANCER
     Dosage: 2.5 MG, LAST DOSE PRIOR TO SAE 18AUG2017
     Route: 065
     Dates: start: 201405, end: 20170827
  8. ATORVASTATIN [Concomitant]
     Active Substance: ATORVASTATIN
     Indication: HYPERCHOLESTEROLAEMIA
     Dosage: 20 MG, 1X/DAY
     Route: 048
     Dates: end: 20170827
  9. PANTOPRAZOL [Concomitant]
     Active Substance: PANTOPRAZOLE SODIUM
     Dosage: UNK
     Dates: start: 20170621, end: 20170827
  10. KEPPRA [Concomitant]
     Active Substance: LEVETIRACETAM
     Indication: EPILEPSY
     Dosage: 1500 MG, 1X/DAY
     Route: 048
     Dates: start: 20060630, end: 20170827
  11. ASS LIGHT [Concomitant]
     Indication: CEREBROVASCULAR ACCIDENT
     Dosage: 100 MG, UNK
     Route: 065
     Dates: end: 20170106
  12. PANTOPRAZOL [Concomitant]
     Active Substance: PANTOPRAZOLE SODIUM
     Dosage: UNK
     Route: 065
     Dates: end: 20170106
  13. HERCEPTIN [Suspect]
     Active Substance: TRASTUZUMAB
     Dosage: 6 MG/KG, UNK
     Route: 042
     Dates: start: 20160108
  14. CLOPIDOGREL [Concomitant]
     Active Substance: CLOPIDOGREL BISULFATE
     Dates: start: 20170621, end: 20170827

REACTIONS (10)
  - Neutropenia [Recovered/Resolved]
  - Epistaxis [Recovered/Resolved]
  - Diarrhoea [Not Recovered/Not Resolved]
  - Febrile neutropenia [Not Recovered/Not Resolved]
  - Cough [Not Recovered/Not Resolved]
  - Dysgeusia [Recovered/Resolved]
  - Mucosal inflammation [Recovered/Resolved]
  - Dysuria [Not Recovered/Not Resolved]
  - Vertigo [Recovered/Resolved]
  - Neoplasm progression [Fatal]

NARRATIVE: CASE EVENT DATE: 20161115
